FAERS Safety Report 6553593-2 (Version None)
Quarter: 2010Q1

REPORT INFORMATION
  Report Type: 
  Country: None (occurrence: None)
  Receive Date: 20100127
  Receipt Date: 20100115
  Transmission Date: 20100710
  Serious: Yes (Other)
  Sender: FDA-Public Use
  Company Number: BR-WYE-H13034710

PATIENT
  Sex: Male
  Weight: 76 kg

DRUGS (5)
  1. PRISTIQ [Suspect]
     Indication: ANXIETY
     Route: 048
     Dates: start: 20090701, end: 20091001
  2. PRISTIQ [Suspect]
     Indication: DEPRESSED MOOD
     Route: 048
     Dates: start: 20091001, end: 20100101
  3. PRISTIQ [Suspect]
     Route: 048
     Dates: start: 20100101
  4. ALCOHOL [Suspect]
     Dosage: UNSPECIFIED AMOUNT
  5. SIMVASTATIN [Concomitant]
     Indication: BLOOD CHOLESTEROL INCREASED
     Route: 048
     Dates: start: 20080101

REACTIONS (7)
  - ALCOHOL ABUSE [None]
  - COMPULSIONS [None]
  - DRUG INEFFECTIVE [None]
  - HYPERSOMNIA [None]
  - LIBIDO DECREASED [None]
  - SEXUAL DYSFUNCTION [None]
  - WEIGHT INCREASED [None]
